FAERS Safety Report 13105444 (Version 2)
Quarter: 2017Q1

REPORT INFORMATION
  Report Type: Spontaneous
  Country: US (occurrence: US)
  Receive Date: 20170111
  Receipt Date: 20170120
  Transmission Date: 20170428
  Serious: Yes (Other)
  Sender: FDA-Public Use
  Company Number: US-CELGENEUS-USA-2017011947

PATIENT
  Sex: Female

DRUGS (1)
  1. REVLIMID [Suspect]
     Active Substance: LENALIDOMIDE
     Indication: LICHENIFICATION
     Dosage: 5 MILLIGRAM
     Route: 048
     Dates: start: 201508

REACTIONS (3)
  - Fall [Unknown]
  - Lower limb fracture [Unknown]
  - Corneal disorder [Unknown]
